FAERS Safety Report 15984491 (Version 1)
Quarter: 2019Q1

REPORT INFORMATION
  Report Type: Spontaneous
  Country: GB (occurrence: GB)
  Receive Date: 20190220
  Receipt Date: 20190220
  Transmission Date: 20190418
  Serious: Yes (Other)
  Sender: FDA-Public Use
  Company Number: GB-AUROBINDO-AUR-APL-2019-008819

PATIENT

DRUGS (3)
  1. DULOXETINE. [Suspect]
     Active Substance: DULOXETINE
     Dosage: 120 MILLIGRAM, DAILY
     Route: 065
     Dates: start: 201801, end: 201811
  2. DULOXETINE. [Suspect]
     Active Substance: DULOXETINE
     Indication: PAIN
     Dosage: 100 MILLIGRAM, DAILY
     Route: 065
  3. DULOXETINE. [Suspect]
     Active Substance: DULOXETINE
     Dosage: 120 MILLIGRAM, DAILY
     Route: 065
     Dates: start: 201811

REACTIONS (9)
  - Asthenia [Unknown]
  - Gait disturbance [Unknown]
  - Weight increased [Unknown]
  - Dizziness [Unknown]
  - Mental disorder [Unknown]
  - Anxiety [Unknown]
  - Withdrawal syndrome [Unknown]
  - Suicidal ideation [Unknown]
  - Paraesthesia [Unknown]
